FAERS Safety Report 13347186 (Version 1)
Quarter: 2017Q1

REPORT INFORMATION
  Report Type: Report from Study
  Country: US (occurrence: US)
  Receive Date: 20170317
  Receipt Date: 20170317
  Transmission Date: 20170428
  Serious: Yes (Hospitalization)
  Sender: FDA-Public Use
  Company Number: US-BAYER-2017-024914

PATIENT
  Age: 62 Year
  Sex: Male

DRUGS (1)
  1. STIVARGA [Suspect]
     Active Substance: REGORAFENIB
     Indication: COLORECTAL CANCER
     Dosage: 120 MG, QD
     Route: 048
     Dates: start: 20170204, end: 20170215

REACTIONS (16)
  - Fatigue [None]
  - Decreased appetite [None]
  - Chest pain [None]
  - Insomnia [None]
  - Nausea [None]
  - Gingival pain [None]
  - Hypoaesthesia [None]
  - Asthenia [None]
  - Pain in extremity [None]
  - Diarrhoea [None]
  - Gingival bleeding [None]
  - Onychoclasis [None]
  - Dysgeusia [None]
  - Dyspnoea exertional [None]
  - Abdominal pain [None]
  - Dysphonia [None]

NARRATIVE: CASE EVENT DATE: 2017
